FAERS Safety Report 9629792 (Version 1)
Quarter: 2013Q4

REPORT INFORMATION
  Report Type: Spontaneous
  Country: US (occurrence: US)
  Receive Date: 20131017
  Receipt Date: 20131017
  Transmission Date: 20140711
  Serious: Yes (Hospitalization)
  Sender: FDA-Public Use
  Company Number: US-BAYER-2013-124221

PATIENT
  Age: 29 Year
  Sex: Female
  Weight: 151.93 kg

DRUGS (26)
  1. YAZ [Suspect]
  2. YASMIN [Suspect]
  3. FLUCONAZOLE [Concomitant]
     Dosage: 150 MG, 1 TIME ONLY
     Route: 048
  4. METRONIDAZOLE [Concomitant]
     Dosage: 500 MG, TWICE DAILY FOR 7 DAYS
     Route: 048
  5. PHENAZOPYRIDINE [Concomitant]
     Dosage: 200 MG ONCE THEN 100 MG TID
     Route: 048
  6. IBUPROFEN [Concomitant]
     Dosage: 800 MG, ONCE
     Route: 048
  7. NAPROSYN [Concomitant]
     Dosage: 500 MG, BID
     Route: 048
  8. KENALOG [Concomitant]
     Dosage: 80 MG, UNK
     Route: 008
  9. XYLOCAINE [Concomitant]
     Dosage: 0.5 %, UNK
     Route: 008
  10. XYLOCAINE [Concomitant]
     Dosage: 5 ML, UNK
     Route: 008
  11. ASPIRIN [Concomitant]
     Dosage: 81 MG, EVERY 12 HOURS BEFORE NIACIN DOSES
     Route: 048
  12. CLOTRIMAZOLE W/BETAMETHASONE DIPROPIONAT [Concomitant]
     Dosage: 1-0.05% APPLY TWICE DAILY
     Route: 061
  13. HYDROCODONE W/ACETAMINOPHEN [Concomitant]
     Indication: PAIN
     Dosage: 5-500 MG, TAKE 1-2 TABLETS EVERY 4-6 HOURS AS NEEDED
     Route: 048
  14. METFORMIN HCL [Concomitant]
     Dosage: 750 MG, ? TID
     Route: 048
  15. OXYCODONE W/PARACETAMOL [Concomitant]
     Indication: BREAKTHROUGH PAIN
     Dosage: 5-325 MG QHS PRN
     Route: 048
  16. PREVACID [Concomitant]
     Dosage: 30 MG, DAILY
     Route: 048
  17. VITAMIN D [Concomitant]
     Dosage: 5000 U, EVERY WEEK
     Route: 048
  18. CIPROFLOXACIN HCL [Concomitant]
     Dosage: 500 MG, TWICE DAILY FOR 7 DAYS
     Route: 048
  19. ABILIFY [Concomitant]
     Dosage: 2 MG, DAILY
     Route: 048
  20. ATIVAN [Concomitant]
     Dosage: 2 MG, 2 TIMES PER DAY
     Route: 048
  21. NEXIUM [Concomitant]
     Dosage: 40 MG, DAILY
  22. PROZAC [Concomitant]
     Dosage: 40 MG, DAILY
     Route: 048
  23. SYNTHROID [Concomitant]
     Dosage: 0.15 MG, DAILY
     Route: 048
  24. ZOCOR [Concomitant]
     Dosage: 40 MG, DAILY
  25. PERCOCET [Concomitant]
  26. PROVERA [Concomitant]

REACTIONS (1)
  - Pulmonary embolism [Recovered/Resolved]
